FAERS Safety Report 6405054-9 (Version None)
Quarter: 2009Q4

REPORT INFORMATION
  Report Type: 
  Country: None (occurrence: None)
  Receive Date: 20091019
  Receipt Date: 20091007
  Transmission Date: 20100525
  Serious: Yes (Other)
  Sender: FDA-Public Use
  Company Number: FR-PFIZER INC-2009280816

PATIENT
  Age: 71 Year

DRUGS (3)
  1. LYRICA [Suspect]
     Indication: NEURALGIA
     Dosage: UNK
     Dates: start: 20090614, end: 20090101
  2. PAROXETINE [Concomitant]
     Dosage: UNK
  3. PREVISCAN [Concomitant]
     Dosage: UNK
     Dates: start: 20090601

REACTIONS (1)
  - TOXIC SKIN ERUPTION [None]
